FAERS Safety Report 7057255-7 (Version None)
Quarter: 2010Q4

REPORT INFORMATION
  Report Type: 
  Country: None (occurrence: None)
  Receive Date: 20101022
  Receipt Date: 20101018
  Transmission Date: 20110411
  Serious: Yes (Life-Threatening, Hospitalization)
  Sender: FDA-Public Use
  Company Number: JP-NOVOPROD-316442

PATIENT
  Sex: Male
  Weight: 74 kg

DRUGS (7)
  1. LEVEMIR [Suspect]
     Indication: TYPE 2 DIABETES MELLITUS
     Dosage: 14 IU, QD
     Route: 058
     Dates: end: 20101012
  2. LEVEMIR [Suspect]
     Dosage: 600 U, SINGLE DOSE
  3. AMARYL [Concomitant]
     Indication: TYPE 2 DIABETES MELLITUS
     Dosage: 2 MG, QD
     Route: 048
     Dates: end: 20101011
  4. ARICEPT                            /01318901/ [Concomitant]
     Indication: DEMENTIA WITH LEWY BODIES
     Dosage: 3 MG, QD
     Route: 048
  5. TOLEDOMIN [Concomitant]
     Indication: DEPRESSION
     Dosage: 150 MG, QD
     Route: 048
  6. RISPERDAL [Concomitant]
     Indication: DEPRESSION
     Dosage: 1 MG, QD
     Route: 048
  7. BENZALIN [Concomitant]
     Indication: DEPRESSION
     Dosage: 20 MG, QD
     Route: 048

REACTIONS (3)
  - HYPOGLYCAEMIC COMA [None]
  - INTENTIONAL OVERDOSE [None]
  - SUICIDE ATTEMPT [None]
